FAERS Safety Report 4916413-5 (Version None)
Quarter: 2006Q1

REPORT INFORMATION
  Report Type: 
  Country: None (occurrence: None)
  Receive Date: 20060220
  Receipt Date: 20060210
  Transmission Date: 20060701
  Serious: Yes (Hospitalization)
  Sender: FDA-Public Use
  Company Number: US-SOLVAY-00206000533

PATIENT
  Age: 32 Year
  Sex: Female
  Weight: 47 kg

DRUGS (8)
  1. PROGESTERONE [Suspect]
     Indication: LUTEAL PHASE DEFICIENCY
     Dosage: DAILY DOSE: 600 MILLIGRAM(S)
     Route: 067
  2. PREGNYL [Suspect]
     Indication: OVULATION INDUCTION
     Dosage: DAILY DOSE: 10000 INTERNATIONAL UNIT(S) ONCE
     Route: 058
  3. ORAL CONTRACEPTIVES NOS [Suspect]
     Indication: IN VITRO FERTILISATION
     Dosage: DAILY DOSE:  UNKNOWN
     Route: 065
  4. LEUPROLIDE ACETATE [Suspect]
     Indication: INFERTILITY
     Dosage: DAILY DOSE: .5 MILLIGRAM(S)
     Route: 065
  5. LEUPROLIDE ACETATE [Suspect]
     Dosage: DAILY DOSE: .25 MILLIGRAM(S)
     Route: 065
  6. UROFOLLITROPIN [Suspect]
     Indication: IN VITRO FERTILISATION
     Dosage: DAILY DOSE: 75 INTERNATIONAL UNIT(S)
     Route: 065
  7. MENOTROPINS [Suspect]
     Indication: IN VITRO FERTILISATION
     Dosage: DAILY DOSE: 75 INTERNATIONAL UNIT(S)
     Route: 065
  8. MENOTROPINS [Suspect]
     Dosage: DAILY DOSE: 37.5 INTERNATIONAL UNIT(S)
     Route: 065

REACTIONS (12)
  - ABDOMINAL PAIN [None]
  - BLOOD SODIUM DECREASED [None]
  - DYSPNOEA [None]
  - INCORRECT ROUTE OF DRUG ADMINISTRATION [None]
  - JUGULAR VEIN THROMBOSIS [None]
  - LOCAL SWELLING [None]
  - NECK PAIN [None]
  - OVARIAN HYPERSTIMULATION SYNDROME [None]
  - PLATELET COUNT INCREASED [None]
  - PROTEIN S ABNORMAL [None]
  - SUBCLAVIAN VEIN THROMBOSIS [None]
  - WEIGHT INCREASED [None]
